FAERS Safety Report 23061287 (Version 3)
Quarter: 2024Q1

REPORT INFORMATION
  Report Type: Report from Study
  Country: US (occurrence: US)
  Receive Date: 20231013
  Receipt Date: 20240229
  Transmission Date: 20240410
  Serious: No
  Sender: FDA-Public Use
  Company Number: US-ACADIA PHARMACEUTICALS INC.-ACA-2023-TRF-004247

PATIENT
  Age: 12 Year
  Sex: Female

DRUGS (1)
  1. DAYBUE [Suspect]
     Active Substance: TROFINETIDE
     Indication: Rett syndrome
     Dosage: 40 MILLILITER, BID, VIA G-TUBE

REACTIONS (9)
  - Frequent bowel movements [Not Recovered/Not Resolved]
  - Frequent bowel movements [Recovering/Resolving]
  - Medical device site infection [Recovered/Resolved]
  - Salivary hypersecretion [Not Recovered/Not Resolved]
  - Drooling [Not Recovered/Not Resolved]
  - Rash [Not Recovered/Not Resolved]
  - Diarrhoea [Not Recovered/Not Resolved]
  - Diarrhoea [Recovering/Resolving]
  - Vomiting [Not Recovered/Not Resolved]

NARRATIVE: CASE EVENT DATE: 20230901
